FAERS Safety Report 17856349 (Version 16)
Quarter: 2022Q1

REPORT INFORMATION
  Report Type: Report from Study
  Country: US (occurrence: US)
  Receive Date: 20200603
  Receipt Date: 20220330
  Transmission Date: 20220423
  Serious: Yes (Death, Hospitalization, Other)
  Sender: FDA-Public Use
  Company Number: US-NOVARTISPH-NVSC2020US153288

PATIENT
  Age: 35 Year
  Sex: Female
  Weight: 76.644 kg

DRUGS (13)
  1. TREPROSTINIL [Suspect]
     Active Substance: TREPROSTINIL
     Indication: Pulmonary arterial hypertension
     Dosage: 12 NG/KG/MIN (STRENGTH: 2.5 MG/ML)
     Route: 042
     Dates: start: 20200526
  2. TREPROSTINIL [Suspect]
     Active Substance: TREPROSTINIL
     Dosage: 60.4 NG/KG/MIN, (CONTINUOUS)
     Route: 042
  3. TREPROSTINIL [Suspect]
     Active Substance: TREPROSTINIL
     Dosage: 50 NG/KG/MIN CONT (STRENGTH: 5 MG/ML)
     Route: 042
  4. TREPROSTINIL [Suspect]
     Active Substance: TREPROSTINIL
     Dosage: UNK
     Route: 065
  5. TREPROSTINIL [Suspect]
     Active Substance: TREPROSTINIL
     Dosage: UNK
     Route: 065
  6. TREPROSTINIL [Suspect]
     Active Substance: TREPROSTINIL
     Dosage: (50 NG/KG/MIN)
     Route: 065
  7. TREPROSTINIL [Suspect]
     Active Substance: TREPROSTINIL
     Dosage: 57.5 NG/KG/MIN CONT
     Route: 042
  8. TREPROSTINIL [Suspect]
     Active Substance: TREPROSTINIL
     Dosage: UNK
     Route: 065
  9. TREPROSTINIL [Suspect]
     Active Substance: TREPROSTINIL
     Dosage: 84 NG/KG/MIN
     Route: 042
  10. TADALAFIL [Concomitant]
     Active Substance: TADALAFIL
     Indication: Product used for unknown indication
     Dosage: UNK
     Route: 065
  11. AMBRISENTAN [Concomitant]
     Active Substance: AMBRISENTAN
     Indication: Product used for unknown indication
     Dosage: UNK
     Route: 065
  12. WARFARIN [Concomitant]
     Active Substance: WARFARIN
     Indication: Product used for unknown indication
     Dosage: UNK
     Route: 065
  13. XARELTO [Concomitant]
     Active Substance: RIVAROXABAN
     Indication: Product used for unknown indication
     Dosage: UNK
     Route: 065

REACTIONS (19)
  - Death [Fatal]
  - Device infusion issue [Unknown]
  - Vascular device infection [Unknown]
  - Device related infection [Unknown]
  - Hypotension [Unknown]
  - Headache [Not Recovered/Not Resolved]
  - Pain in jaw [Unknown]
  - Flushing [Recovered/Resolved]
  - Chest pain [Recovered/Resolved]
  - Blood potassium decreased [Unknown]
  - Dry skin [Unknown]
  - Pain in extremity [Unknown]
  - Device issue [Recovered/Resolved]
  - Accidental exposure to product [Unknown]
  - Device leakage [Unknown]
  - Pruritus [Unknown]
  - Infusion site irritation [Unknown]
  - Infusion site pain [Unknown]
  - Rash [Unknown]

NARRATIVE: CASE EVENT DATE: 20210723
